FAERS Safety Report 7305946-2 (Version None)
Quarter: 2011Q1

REPORT INFORMATION
  Report Type: 
  Country: None (occurrence: None)
  Receive Date: 20110222
  Receipt Date: 20110209
  Transmission Date: 20110831
  Serious: Yes (Hospitalization)
  Sender: FDA-Public Use
  Company Number: TR-WATSON-2011-01982

PATIENT
  Age: 74 Year
  Sex: Female

DRUGS (1)
  1. DICLOFENAC (WATSON LABORATORIES) [Suspect]
     Indication: PRODUCT USED FOR UNKNOWN INDICATION
     Dosage: UNK
     Route: 048

REACTIONS (5)
  - CHEST PAIN [None]
  - KOUNIS SYNDROME [None]
  - GENERALISED ERYTHEMA [None]
  - ELECTROCARDIOGRAM ST SEGMENT ELEVATION [None]
  - ATRIOVENTRICULAR BLOCK COMPLETE [None]
